FAERS Safety Report 15734847 (Version 2)
Quarter: 2018Q4

REPORT INFORMATION
  Report Type: Spontaneous
  Country: US (occurrence: US)
  Receive Date: 20181218
  Receipt Date: 20181227
  Transmission Date: 20190205
  Serious: No
  Sender: FDA-Public Use
  Company Number: US-HORIZON-KRY-0427-2018

PATIENT
  Age: 57 Year
  Sex: Male

DRUGS (3)
  1. KRYSTEXXA [Suspect]
     Active Substance: PEGLOTICASE
     Indication: GOUT
     Dosage: AS DIRECTED
     Dates: start: 20181107, end: 20181121
  2. ULORIC [Concomitant]
     Active Substance: FEBUXOSTAT
  3. MITIGARE [Concomitant]
     Active Substance: COLCHICINE

REACTIONS (1)
  - Therapeutic response decreased [Unknown]
